FAERS Safety Report 8589550-4 (Version None)
Quarter: 2012Q3

REPORT INFORMATION
  Report Type: 
  Country: None (occurrence: None)
  Receive Date: 20120813
  Receipt Date: 20120803
  Transmission Date: 20120928
  Serious: Yes (Hospitalization)
  Sender: FDA-Public Use
  Company Number: FR-VERTEX PHARMACEUTICALS INC.-000000000000001395

PATIENT
  Sex: Female
  Weight: 60 kg

DRUGS (9)
  1. TELAPREVIR [Suspect]
     Indication: HEPATITIS C
     Dosage: DOSAGE FORM: TABLET, 3 TABLETS IN AM AND 2 TABLETS IN PM
     Route: 048
     Dates: start: 20120511, end: 20120706
  2. PLACEBO [Concomitant]
     Dosage: DOSAGE FORM: TABLET
     Route: 048
     Dates: start: 20120706, end: 20120706
  3. ACETAMINOPHEN [Concomitant]
     Route: 048
     Dates: start: 20120511
  4. TELAPREVIR [Suspect]
     Dosage: DOSAGE FORM: TABLET
     Route: 048
     Dates: start: 20120706, end: 20120706
  5. PLACEBO [Concomitant]
     Indication: HEPATITIS C
     Dosage: DOSAGE FORM: TABLET, 3 TABLETS IN AM AND 2 TABLETS IN PM
     Route: 048
     Dates: start: 20120511, end: 20120706
  6. PEGINTERFERON ALFA-2A [Concomitant]
     Indication: HEPATITIS C
     Dosage: DOSAGE FORM: INJECTION
     Route: 058
     Dates: start: 20120511, end: 20120713
  7. RIBAVIRIN [Concomitant]
     Dosage: DOSAGE FORM: TABLET, 2 TABS IN AND 3 TABS IN EVENING
     Route: 048
     Dates: start: 20120511, end: 20120712
  8. RIBAVIRIN [Concomitant]
     Indication: HEPATITIS C
     Dosage: DOSAGE FORM: TABLET, ONCE IN MORNING
     Route: 048
     Dates: start: 20120713, end: 20120713
  9. PROCTOLOG [Concomitant]
     Route: 061
     Dates: start: 20120515

REACTIONS (1)
  - TOXIC SKIN ERUPTION [None]
